FAERS Safety Report 14523634 (Version 3)
Quarter: 2018Q1

REPORT INFORMATION
  Report Type: Report from Study
  Country: None (occurrence: US)
  Receive Date: 20180213
  Receipt Date: 20180313
  Transmission Date: 20180509
  Serious: Yes (Other)
  Sender: FDA-Public Use
  Company Number: US-ABBVIE-18P-163-2251570-00

PATIENT
  Age: 37 Year
  Sex: Female

DRUGS (6)
  1. AMITIZA [Concomitant]
     Active Substance: LUBIPROSTONE
     Indication: IRRITABLE BOWEL SYNDROME
     Route: 048
  2. AMITIZA [Concomitant]
     Active Substance: LUBIPROSTONE
     Indication: CONSTIPATION PROPHYLAXIS
  3. LUPRON DEPOT [Suspect]
     Active Substance: LEUPROLIDE ACETATE
     Indication: ENDOMETRIOSIS
     Route: 050
     Dates: start: 20180202, end: 20180202
  4. NORETHINDRONE ACETATE. [Concomitant]
     Active Substance: NORETHINDRONE ACETATE
     Indication: PRODUCT USED FOR UNKNOWN INDICATION
     Route: 048
     Dates: start: 20180206
  5. LUPRON DEPOT [Suspect]
     Active Substance: LEUPROLIDE ACETATE
     Indication: ENDOMETRIOSIS
     Route: 030
     Dates: start: 2002, end: 2002
  6. LUPRON DEPOT [Suspect]
     Active Substance: LEUPROLIDE ACETATE
     Route: 030
     Dates: start: 20180202, end: 20180202

REACTIONS (13)
  - Ovarian cyst ruptured [Recovered/Resolved]
  - Endometriosis [Recovered/Resolved]
  - Increased appetite [Not Recovered/Not Resolved]
  - Constipation [Recovered/Resolved]
  - Endometriosis [Recovered/Resolved]
  - Depression [Not Recovered/Not Resolved]
  - Malignant melanoma [Recovered/Resolved]
  - Hormone level abnormal [Not Recovered/Not Resolved]
  - Irritability [Not Recovered/Not Resolved]
  - Ovarian cyst [Recovered/Resolved]
  - Weight increased [Not Recovered/Not Resolved]
  - Irritable bowel syndrome [Recovered/Resolved]
  - Mood swings [Not Recovered/Not Resolved]

NARRATIVE: CASE EVENT DATE: 2003
